FAERS Safety Report 16987402 (Version 2)
Quarter: 2025Q3

REPORT INFORMATION
  Report Type: Spontaneous
  Country: EU (occurrence: EU)
  Receive Date: 20191104
  Receipt Date: 20250707
  Transmission Date: 20251020
  Serious: Yes (Life-Threatening, Other)
  Sender: AUROBINDO
  Company Number: EU-AUROBINDO-AUR-APL-2019-070939

PATIENT
  Age: 33 Year
  Sex: Male

DRUGS (6)
  1. VORICONAZOLE [Suspect]
     Active Substance: VORICONAZOLE
     Indication: Product used for unknown indication
     Route: 065
  2. DEXAMETHASONE [Suspect]
     Active Substance: DEXAMETHASONE
     Indication: Systemic lupus erythematosus
     Route: 065
  3. DEXAMETHASONE [Suspect]
     Active Substance: DEXAMETHASONE
     Indication: Haemophagocytic lymphohistiocytosis
  4. ETOPOSIDE [Suspect]
     Active Substance: ETOPOSIDE
     Indication: Systemic lupus erythematosus
     Route: 065
  5. ETOPOSIDE [Suspect]
     Active Substance: ETOPOSIDE
     Indication: Haemophagocytic lymphohistiocytosis
  6. ETOPOSIDE [Suspect]
     Active Substance: ETOPOSIDE
     Indication: Pulmonary alveolar haemorrhage

REACTIONS (10)
  - Pulmonary alveolar haemorrhage [Unknown]
  - Respiratory failure [Recovered/Resolved]
  - Bronchopulmonary aspergillosis [Unknown]
  - Product use in unapproved indication [Recovered/Resolved]
  - Haemoptysis [Recovered/Resolved]
  - Mucosal ulceration [Unknown]
  - Hypoxia [Unknown]
  - Pleural effusion [Unknown]
  - Fibrinous bronchitis [Unknown]
  - Condition aggravated [Recovering/Resolving]
